FAERS Safety Report 7384648-0 (Version None)
Quarter: 2011Q1

REPORT INFORMATION
  Report Type: 
  Country: None (occurrence: None)
  Receive Date: 20110330
  Receipt Date: 20110322
  Transmission Date: 20110831
  Serious: Yes (Hospitalization)
  Sender: FDA-Public Use
  Company Number: JP-NAPPMUNDI-GBR-2011-0007943

PATIENT
  Age: 73 Year
  Sex: Female

DRUGS (1)
  1. MORPHINE SULFATE [Suspect]
     Indication: PAIN
     Route: 065

REACTIONS (8)
  - DERMATITIS EXFOLIATIVE [None]
  - BLOOD IMMUNOGLOBULIN A INCREASED [None]
  - BLOOD CALCIUM DECREASED [None]
  - LYMPHADENOPATHY [None]
  - EOSINOPHIL COUNT INCREASED [None]
  - PYREXIA [None]
  - PRURITUS [None]
  - ADMINISTRATION RELATED REACTION [None]
